FAERS Safety Report 25552841 (Version 1)
Quarter: 2025Q3

REPORT INFORMATION
  Report Type: Spontaneous
  Country: CN (occurrence: CN)
  Receive Date: 20250715
  Receipt Date: 20250715
  Transmission Date: 20251020
  Serious: Yes (Other)
  Sender: GLAXOSMITHKLINE
  Company Number: CN-GLAXOSMITHKLINE INC-CN2025APC085273

PATIENT
  Age: 38 Year
  Sex: Female

DRUGS (5)
  1. BELIMUMAB [Suspect]
     Active Substance: BELIMUMAB
     Indication: Systemic lupus erythematosus
     Dosage: 480 MG, MO
  2. BELIMUMAB [Suspect]
     Active Substance: BELIMUMAB
  3. IGURATIMOD [Suspect]
     Active Substance: IGURATIMOD
     Indication: Systemic lupus erythematosus
  4. IGURATIMOD [Suspect]
     Active Substance: IGURATIMOD
     Dosage: 25 MG, QD
  5. AROTINOLOL [Concomitant]
     Active Substance: AROTINOLOL
     Indication: Product used for unknown indication

REACTIONS (4)
  - Systemic lupus erythematosus [Not Recovered/Not Resolved]
  - Alopecia areata [Not Recovered/Not Resolved]
  - Erythema [Not Recovered/Not Resolved]
  - Alopecia [Not Recovered/Not Resolved]

NARRATIVE: CASE EVENT DATE: 20250615
